FAERS Safety Report 12800805 (Version 2)
Quarter: 2016Q4

REPORT INFORMATION
  Report Type: Report from Study
  Country: US (occurrence: US)
  Receive Date: 20161002
  Receipt Date: 20161231
  Transmission Date: 20170207
  Serious: Yes (Hospitalization, Disabling, Other)
  Sender: FDA-Public Use
  Company Number: US-AMGEN-USASL2016132020

PATIENT
  Age: 57 Year
  Sex: Female
  Weight: 79.83 kg

DRUGS (24)
  1. HYGROTON [Concomitant]
     Active Substance: CHLORTHALIDONE
     Dosage: 50 MG, QD
     Dates: start: 20160607, end: 20160715
  2. CARDIZEM CD [Concomitant]
     Active Substance: DILTIAZEM HYDROCHLORIDE
     Indication: BLOOD PRESSURE INCREASED
     Dosage: 120 MG, BID
     Route: 048
  3. IMDUR [Concomitant]
     Active Substance: ISOSORBIDE MONONITRATE
     Dosage: 60 MG, QD
     Route: 048
  4. HYGROTON [Concomitant]
     Active Substance: CHLORTHALIDONE
     Dosage: 25 MG, QD
     Route: 048
  5. AMOXICILLIN. [Concomitant]
     Active Substance: AMOXICILLIN
  6. REPATHA [Suspect]
     Active Substance: EVOLOCUMAB
     Indication: HYPERLIPIDAEMIA
  7. NEURONTIN [Concomitant]
     Active Substance: GABAPENTIN
     Dosage: 300 MG, BID
     Route: 048
  8. PULMICORT TURBUHALER [Concomitant]
     Active Substance: BUDESONIDE
     Dosage: 0.5 MG/2 ML
  9. NITROLINGUAL [Concomitant]
     Active Substance: NITROGLYCERIN
     Dosage: 400 MCG/SPRAY
  10. KERYDIN [Concomitant]
     Active Substance: TAVABOROLE
  11. REPATHA [Suspect]
     Active Substance: EVOLOCUMAB
     Indication: BLOOD CHOLESTEROL DECREASED
     Dosage: 140 MG, Q2WK
     Route: 058
     Dates: start: 20160220
  12. EZETIMIBE. [Concomitant]
     Active Substance: EZETIMIBE
  13. LOFIBRA [Concomitant]
     Active Substance: FENOFIBRATE
     Dosage: 67 MG, QD
     Route: 048
  14. ASPIRIN. [Concomitant]
     Active Substance: ASPIRIN
     Dosage: 81 MG, QD
     Route: 048
  15. MOXIFLOXACIN. [Concomitant]
     Active Substance: MOXIFLOXACIN
  16. TENEX [Concomitant]
     Active Substance: GUANFACINE HYDROCHLORIDE
     Dosage: 1 MG, QD (AT NIGHT)
     Route: 048
  17. TYLENOL [Concomitant]
     Active Substance: ACETAMINOPHEN
     Dosage: 650 MG, QD
  18. CEPACOL [Concomitant]
     Active Substance: BENZOCAINE
  19. DIFLUCAN [Concomitant]
     Active Substance: FLUCONAZOLE
  20. GABAPENTIN. [Concomitant]
     Active Substance: GABAPENTIN
     Dosage: 600 MG, BEDTIME
  21. ZETIA [Concomitant]
     Active Substance: EZETIMIBE
     Dosage: 10 MG, QD
     Route: 048
  22. LESCOL [Concomitant]
     Active Substance: FLUVASTATIN SODIUM
     Dosage: 40 MG, UNK
  23. AMBIEN [Concomitant]
     Active Substance: ZOLPIDEM TARTRATE
     Dosage: 5 MG, UNK
  24. GABAPENTIN. [Concomitant]
     Active Substance: GABAPENTIN
     Dosage: 300 MG, UNK

REACTIONS (30)
  - Attention deficit/hyperactivity disorder [Unknown]
  - Musculoskeletal pain [Unknown]
  - Dizziness [Unknown]
  - Upper respiratory tract infection [Unknown]
  - Vitamin D deficiency [Unknown]
  - Left ventricular hypertrophy [Unknown]
  - Hypertension [Not Recovered/Not Resolved]
  - Headache [Unknown]
  - Urinary tract infection [Unknown]
  - Myalgia [Unknown]
  - Sleep apnoea syndrome [Unknown]
  - Renal artery stenosis [Unknown]
  - Arthralgia [Unknown]
  - Oropharyngeal discomfort [Unknown]
  - Intraocular pressure increased [Not Recovered/Not Resolved]
  - Bronchitis [Unknown]
  - Obesity [Unknown]
  - Memory impairment [Unknown]
  - Respiratory symptom [Not Recovered/Not Resolved]
  - Lacrimation increased [Not Recovered/Not Resolved]
  - Sinus bradycardia [Unknown]
  - Dyspnoea exertional [Unknown]
  - Chronic sinusitis [Unknown]
  - Insomnia [Unknown]
  - Nasopharyngitis [Unknown]
  - Sleep apnoea syndrome [Recovered/Resolved]
  - Ocular hyperaemia [Not Recovered/Not Resolved]
  - Ventricular extrasystoles [Unknown]
  - Acute myocardial infarction [Unknown]
  - Vitamin B12 deficiency [Unknown]

NARRATIVE: CASE EVENT DATE: 2016
